FAERS Safety Report 18311544 (Version 2)
Quarter: 2021Q1

REPORT INFORMATION
  Report Type: Spontaneous
  Country: CA (occurrence: CA)
  Receive Date: 20200925
  Receipt Date: 20210201
  Transmission Date: 20210419
  Serious: Yes (Death, Other)
  Sender: FDA-Public Use
  Company Number: CA-MYLANLABS-2020M1080692

PATIENT
  Age: 96 Year
  Sex: Female
  Weight: 45 kg

DRUGS (1)
  1. MYLAN?NITRO PATCH 0.4 [Suspect]
     Active Substance: NITROGLYCERIN
     Indication: PRODUCT USED FOR UNKNOWN INDICATION
     Dosage: 0.4 MILLIGRAM
     Route: 062

REACTIONS (7)
  - Incorrect product administration duration [Recovering/Resolving]
  - Speech disorder [Recovering/Resolving]
  - General physical health deterioration [Recovering/Resolving]
  - Product design issue [Recovering/Resolving]
  - Death [Fatal]
  - Cerebrovascular accident [Recovering/Resolving]
  - Transient ischaemic attack [Recovering/Resolving]

NARRATIVE: CASE EVENT DATE: 20200918
